FAERS Safety Report 13430896 (Version 3)
Quarter: 2017Q2

REPORT INFORMATION
  Report Type: Spontaneous
  Country: DE (occurrence: DE)
  Receive Date: 20170412
  Receipt Date: 20170526
  Transmission Date: 20170830
  Serious: Yes (Hospitalization, Disabling, Other)
  Sender: FDA-Public Use
  Company Number: DE-PFIZER INC-2017143497

PATIENT
  Age: 49 Year
  Sex: Female
  Weight: 56 kg

DRUGS (26)
  1. PANZYTRAT [Concomitant]
     Dosage: 6-6-6 AND AS NEEDED
  2. URSOFALK [Concomitant]
     Active Substance: URSODIOL
     Dosage: 250 MG, 3X/DAY
  3. HUMALOG [Concomitant]
     Active Substance: INSULIN LISPRO
     Dosage: 0.75 IU, NOON AND IN THE EVENING (AFTER MEALS)
  4. IDEOS [Concomitant]
     Active Substance: CALCIUM CARBONATE\CHOLECALCIFEROL
     Dosage: 500 MG, 1X/DAY
  5. VALSARTAN. [Suspect]
     Active Substance: VALSARTAN
     Indication: HYPERTENSION
     Dosage: 160 MG, UNK
     Route: 048
     Dates: start: 201701, end: 20170113
  6. DEKRISTOL [Concomitant]
     Active Substance: CHOLECALCIFEROL
     Dosage: 1 DF, MONTHLY
  7. PROBIO [Concomitant]
     Dosage: 1 DF, 2X/DAY
  8. CEFTOLOZAN [Suspect]
     Active Substance: CEFTOLOZANE
     Dosage: UNK
     Route: 065
     Dates: start: 20161218
  9. VIGANTOLETTEN [Concomitant]
     Active Substance: CHOLECALCIFEROL
     Dosage: 1 DF, 2X/DAY
  10. ZITHROMAX [Concomitant]
     Active Substance: AZITHROMYCIN DIHYDRATE
     Dosage: 500 MG, 3X/DAY
  11. HUMALOG [Concomitant]
     Active Substance: INSULIN LISPRO
     Dosage: 0.5 IU, IN THE MORNING (AFTER MEALS)
  12. ULTIBRO BREEZHALER [Concomitant]
     Active Substance: GLYCOPYRRONIUM\INDACATEROL
     Dosage: UNK
  13. ATROVENT [Concomitant]
     Active Substance: IPRATROPIUM BROMIDE
     Dosage: OVER PARI BOY
  14. CAYSTON [Concomitant]
     Active Substance: AZTREONAM
     Dosage: 1 DF, 3X/DAY (PAUSED AT THIS TIME)
  15. RAMIPRIL. [Suspect]
     Active Substance: RAMIPRIL
     Indication: HYPERTENSION
     Dosage: 2.5 MG, UNK
     Route: 065
     Dates: start: 20161222
  16. RAMIPRIL. [Suspect]
     Active Substance: RAMIPRIL
     Dosage: 7.5 MG, UNK
     Route: 065
     Dates: start: 201701
  17. PULMOZYME [Concomitant]
     Active Substance: DORNASE ALFA
     Dosage: 1 DF, 1X/DAY
  18. COLOBREATHE [Concomitant]
     Active Substance: COLISTIMETHATE SODIUM
     Dosage: 1 DF, 3X/DAY (IN A 4-WEEK CHANGE RHYTHM WITH CAYSTON)
  19. ORKAMBI [Concomitant]
     Active Substance: IVACAFTOR\LUMACAFTOR
     Dosage: 1 DF, 4X/DAY
     Dates: start: 201601
  20. FERRUM HAUSMANN [Concomitant]
     Active Substance: FERROUS FUMARATE
     Dosage: 20 GTT, 1X/DAY
  21. SULTANOL [Concomitant]
     Active Substance: ALBUTEROL SULFATE
     Dosage: 1 DF, IN CASE OF SHORTNESS OF BREATH AND FOR SPORTS
  22. TOBRAMYCIN. [Suspect]
     Active Substance: TOBRAMYCIN
     Dosage: UNK
     Route: 065
     Dates: start: 20161218
  23. RAMIPRIL. [Suspect]
     Active Substance: RAMIPRIL
     Dosage: 5 MG, UNK
     Route: 065
     Dates: start: 20161227
  24. AMLODIPIN [Concomitant]
     Active Substance: AMLODIPINE BESYLATE
     Dosage: 5 MG, 2X/DAY
  25. BUDESONID [Concomitant]
     Active Substance: BUDESONIDE
     Dosage: 400 UG, UNK
  26. CYCLOCAPS [Concomitant]
     Dosage: 1 DF, 2X/DAY

REACTIONS (4)
  - Sleep disorder [Unknown]
  - Renal failure [Not Recovered/Not Resolved]
  - Tubulointerstitial nephritis [Not Recovered/Not Resolved]
  - Cough [Unknown]

NARRATIVE: CASE EVENT DATE: 20170113
